FAERS Safety Report 7946448-X (Version None)
Quarter: 2011Q4

REPORT INFORMATION
  Report Type: 
  Country: None (occurrence: None)
  Receive Date: 20111123
  Receipt Date: 20111111
  Transmission Date: 20120403
  Serious: Yes (Life-Threatening, Hospitalization)
  Sender: FDA-Public Use
  Company Number: TCI2011A03771

PATIENT
  Age: 69 Year
  Sex: Male

DRUGS (3)
  1. GLIMICRON (GLICLAZIDE) [Concomitant]
  2. ACTOS [Suspect]
     Indication: DIABETES MELLITUS
     Dosage: 45 MG (45 MG, 1 D) PER ORAL
     Route: 048
     Dates: end: 20100601
  3. BASEN (VOGLIBOSE) [Concomitant]

REACTIONS (2)
  - HAEMATURIA [None]
  - BLADDER CANCER [None]
